FAERS Safety Report 23726267 (Version 1)
Quarter: 2024Q2

REPORT INFORMATION
  Report Type: Spontaneous
  Country: US (occurrence: US)
  Receive Date: 20240410
  Receipt Date: 20240410
  Transmission Date: 20240716
  Serious: No
  Sender: FDA-Public Use
  Company Number: US-TEVA-VS-3175390

PATIENT
  Sex: Female

DRUGS (2)
  1. FREMANEZUMAB [Suspect]
     Active Substance: FREMANEZUMAB
     Indication: Product used for unknown indication
     Route: 065
  2. FREMANEZUMAB [Suspect]
     Active Substance: FREMANEZUMAB

REACTIONS (1)
  - Peripheral swelling [Recovered/Resolved]
